FAERS Safety Report 7324194-3 (Version None)
Quarter: 2011Q1

REPORT INFORMATION
  Report Type: 
  Country: None (occurrence: None)
  Receive Date: 20110202
  Receipt Date: 20101012
  Transmission Date: 20110831
  Serious: No
  Sender: FDA-Public Use
  Company Number: 2010-13582

PATIENT
  Age: 58 Year
  Sex: Male
  Weight: 145.1 kg

DRUGS (1)
  1. RAPAFLO [Suspect]
     Indication: URINARY INCONTINENCE
     Dosage: 8 MG, DAILY, ORAL
     Route: 048
     Dates: start: 20100609, end: 20101011

REACTIONS (3)
  - PLANTAR FASCIITIS [None]
  - MUSCLE TIGHTNESS [None]
  - MUSCLE CONTRACTIONS INVOLUNTARY [None]
